FAERS Safety Report 6314933-2 (Version None)
Quarter: 2009Q3

REPORT INFORMATION
  Report Type: 
  Country: None (occurrence: None)
  Receive Date: 20090819
  Receipt Date: 20090812
  Transmission Date: 20100115
  Serious: Yes (Other)
  Sender: FDA-Public Use
  Company Number: A0802115A

PATIENT
  Sex: Female

DRUGS (2)
  1. AVANDIA [Suspect]
     Dosage: 1G TWICE PER DAY
     Route: 048
     Dates: start: 20090513
  2. INSULIN [Concomitant]

REACTIONS (1)
  - HYPOGLYCAEMIA [None]
